FAERS Safety Report 6066962-4 (Version None)
Quarter: 2009Q1

REPORT INFORMATION
  Report Type: 
  Country: None (occurrence: None)
  Receive Date: 20090205
  Receipt Date: 20081229
  Transmission Date: 20090719
  Serious: No
  Sender: FDA-Public Use
  Company Number: US-ABBOTT-09P-163-0495530-00

PATIENT
  Sex: Female

DRUGS (1)
  1. VICODIN [Suspect]
     Indication: NECK PAIN
     Dosage: ONCE
     Route: 048
     Dates: start: 19960101, end: 19960101

REACTIONS (1)
  - PRURITUS [None]
